FAERS Safety Report 5385832-8 (Version None)
Quarter: 2007Q3

REPORT INFORMATION
  Report Type: 
  Country: None (occurrence: None)
  Receive Date: 20070712
  Receipt Date: 20070704
  Transmission Date: 20080115
  Serious: Yes (Life-Threatening)
  Sender: FDA-Public Use
  Company Number: ES-ABBOTT-07P-144-0373757-00

PATIENT
  Age: 85 Year
  Sex: Male

DRUGS (3)
  1. DEPAKENE [Suspect]
     Indication: SENILE PSYCHOSIS
     Route: 048
     Dates: start: 20061011, end: 20061016
  2. QUETIAPINE [Suspect]
     Indication: SENILE PSYCHOSIS
     Route: 048
     Dates: start: 20061011, end: 20061016
  3. CLONAZEPAM [Suspect]
     Indication: SENILE PSYCHOSIS
     Route: 048
     Dates: start: 20061011, end: 20061016

REACTIONS (1)
  - STUPOR [None]
